FAERS Safety Report 4392575-6 (Version None)
Quarter: 2004Q3

REPORT INFORMATION
  Report Type: 
  Country: None (occurrence: None)
  Receive Date: 20040708
  Receipt Date: 19991102
  Transmission Date: 20050211
  Serious: Yes (Hospitalization)
  Sender: FDA-Public Use
  Company Number: 199921143RHF

PATIENT
  Age: 58 Year
  Sex: Female

DRUGS (2)
  1. DAONIL 5 MG [Suspect]
     Indication: DIABETES MELLITUS
     Route: 048
     Dates: start: 19990711, end: 19990723
  2. GLUCOPHAGE [Concomitant]
     Route: 048

REACTIONS (6)
  - ABDOMINAL PAIN [None]
  - BACK PAIN [None]
  - GLUCOSE-6-PHOSPHATE DEHYDROGENASE DEFICIENCY [None]
  - NAUSEA [None]
  - RETICULOCYTE COUNT INCREASED [None]
  - VOMITING [None]
